FAERS Safety Report 18716407 (Version 1)
Quarter: 2021Q1

REPORT INFORMATION
  Report Type: Spontaneous
  Country: IT (occurrence: IT)
  Receive Date: 20210108
  Receipt Date: 20210108
  Transmission Date: 20210419
  Serious: Yes (Hospitalization)
  Sender: FDA-Public Use
  Company Number: IT-STRIDES ARCOLAB LIMITED-2021SP000311

PATIENT
  Age: 74 Year
  Sex: Male

DRUGS (1)
  1. CLARITHROMYCIN. [Suspect]
     Active Substance: CLARITHROMYCIN
     Indication: ACUTE RESPIRATORY FAILURE
     Dosage: UNK
     Route: 065

REACTIONS (3)
  - Megacolon [Unknown]
  - Clostridium difficile infection [Unknown]
  - Off label use [Unknown]
